FAERS Safety Report 7238378-6 (Version None)
Quarter: 2011Q1

REPORT INFORMATION
  Report Type: 
  Country: None (occurrence: None)
  Receive Date: 20110121
  Receipt Date: 20110116
  Transmission Date: 20110831
  Serious: Yes (Other)
  Sender: FDA-Public Use
  Company Number: US-TEVA-263462USA

PATIENT
  Sex: Female
  Weight: 51.756 kg

DRUGS (2)
  1. PLAN B ONE-STEP [Suspect]
     Route: 048
     Dates: start: 20110111, end: 20110111
  2. PLAN B ONE-STEP [Suspect]
     Indication: POST COITAL CONTRACEPTION
     Route: 048
     Dates: start: 20101001, end: 20101001

REACTIONS (9)
  - DRUG INEFFECTIVE [None]
  - PREGNANCY AFTER POST COITAL CONTRACEPTION [None]
  - MENSTRUATION IRREGULAR [None]
  - MENSTRUATION DELAYED [None]
  - DIZZINESS [None]
  - ABORTION SPONTANEOUS [None]
  - VAGINAL HAEMORRHAGE [None]
  - ABDOMINAL PAIN [None]
  - BLOOD URINE [None]
